FAERS Safety Report 18212917 (Version 1)
Quarter: 2020Q3

REPORT INFORMATION
  Report Type: Spontaneous
  Country: US (occurrence: US)
  Receive Date: 20200828
  Receipt Date: 20200828
  Transmission Date: 20201103
  Serious: Yes (Death)
  Sender: FDA-Public Use
  Company Number: None

PATIENT
  Age: 80 Year
  Sex: Male
  Weight: 49.9 kg

DRUGS (1)
  1. ZOLEDRONIC ACID 5MG/100ML, 5MG/100ML [Suspect]
     Active Substance: ZOLEDRONIC ACID
     Indication: SENILE OSTEOPOROSIS
     Dosage: INFUSE 5MG INTRAVENOUSLY OVER NO LESS THAN 15 MINS EVERY YEAR AS DIRECTED.
     Route: 042
     Dates: start: 201907

REACTIONS (1)
  - Death [None]
